FAERS Safety Report 12460656 (Version 4)
Quarter: 2016Q3

REPORT INFORMATION
  Report Type: Spontaneous
  Country: FR (occurrence: FR)
  Receive Date: 20160613
  Receipt Date: 20160805
  Transmission Date: 20161109
  Serious: Yes (Other)
  Sender: FDA-Public Use
  Company Number: FR-009507513-1606FRA005445

PATIENT
  Age: 12 Year
  Sex: Male
  Weight: 37 kg

DRUGS (1)
  1. MONTELUKAST [Suspect]
     Active Substance: MONTELUKAST SODIUM
     Indication: ASTHMA
     Dosage: 4 MG TABLET, 1 TABLET, DAILY
     Route: 048
     Dates: end: 201512

REACTIONS (3)
  - Drug prescribing error [Unknown]
  - Intercepted drug prescribing error [Unknown]
  - Asthmatic crisis [Unknown]

NARRATIVE: CASE EVENT DATE: 20160608
